FAERS Safety Report 4971392-X (Version None)
Quarter: 2006Q2

REPORT INFORMATION
  Report Type: 
  Country: None (occurrence: None)
  Receive Date: 20060406
  Receipt Date: 20060323
  Transmission Date: 20061013
  Serious: Yes (Disabling, Other)
  Sender: FDA-Public Use
  Company Number: 2005-02091

PATIENT
  Age: 71 Year
  Sex: Male

DRUGS (5)
  1. VELCADE [Suspect]
     Indication: MULTIPLE MYELOMA
     Dosage: 1.30 MG/M2, 2/WEEK, INTRAVENOUS
     Route: 042
     Dates: start: 20050808, end: 20050929
  2. DEXAMETHASONE [Concomitant]
  3. ALLOPURINOL [Concomitant]
  4. DOMPERIDONE (DOMPERIDONE) [Concomitant]
  5. LORON (CLODRONATE DISODIUM) [Concomitant]

REACTIONS (4)
  - DEAFNESS [None]
  - TINNITUS [None]
  - VERTIGO [None]
  - VOMITING [None]
